FAERS Safety Report 16828822 (Version 2)
Quarter: 2020Q2

REPORT INFORMATION
  Report Type: Report from Study
  Country: CA (occurrence: CA)
  Receive Date: 20190919
  Receipt Date: 20200529
  Transmission Date: 20200713
  Serious: Yes (Death, Life-Threatening, Hospitalization, Other)
  Sender: FDA-Public Use
  Company Number: CA-JNJFOC-20190918568

PATIENT
  Age: 63 Year
  Sex: Female
  Weight: 127.01 kg

DRUGS (2)
  1. REMICADE [Suspect]
     Active Substance: INFLIXIMAB
     Route: 042
     Dates: start: 20141114, end: 20200403
  2. REMICADE [Suspect]
     Active Substance: INFLIXIMAB
     Indication: CROHN^S DISEASE
     Route: 042
     Dates: start: 20140830

REACTIONS (5)
  - Endometrial cancer metastatic [Not Recovered/Not Resolved]
  - Muscle strain [Unknown]
  - Ovarian cancer metastatic [Unknown]
  - Death [Fatal]
  - Metastases to lung [Not Recovered/Not Resolved]

NARRATIVE: CASE EVENT DATE: 201804
